FAERS Safety Report 14655798 (Version 1)
Quarter: 2018Q1

REPORT INFORMATION
  Report Type: Spontaneous
  Country: US (occurrence: US)
  Receive Date: 20180319
  Receipt Date: 20180319
  Transmission Date: 20180509
  Serious: Yes (Other)
  Sender: FDA-Public Use
  Company Number: PHEH2018US010154

PATIENT
  Sex: Male

DRUGS (1)
  1. DORZOLAMIDE/TIMOLOL SANDOZ [Suspect]
     Active Substance: DORZOLAMIDE\TIMOLOL
     Indication: GLAUCOMA
     Route: 047

REACTIONS (1)
  - Visual impairment [Unknown]
